FAERS Safety Report 25204340 (Version 1)
Quarter: 2025Q2

REPORT INFORMATION
  Report Type: Spontaneous
  Country: US (occurrence: US)
  Receive Date: 20250416
  Receipt Date: 20250416
  Transmission Date: 20250716
  Serious: Yes (Hospitalization)
  Sender: GRIFOLS
  Company Number: US-IGSA-BIG0032835

PATIENT
  Age: 71 Year
  Sex: Female

DRUGS (3)
  1. GAMUNEX-C [Suspect]
     Active Substance: HUMAN IMMUNOGLOBULIN G
     Indication: Stiff person syndrome
     Dosage: 50 GRAM, Q.O.WK.
     Route: 065
     Dates: start: 20241219
  2. GAMUNEX-C [Suspect]
     Active Substance: HUMAN IMMUNOGLOBULIN G
     Dosage: 50 GRAM, Q.2WK.
     Route: 042
  3. GAMUNEX-C [Suspect]
     Active Substance: HUMAN IMMUNOGLOBULIN G
     Dosage: 50 GRAM, Q.2WK.
     Route: 042

REACTIONS (4)
  - Urinary tract infection [Unknown]
  - Mental status changes [Unknown]
  - Urine analysis abnormal [Unknown]
  - Feeding tube user [Unknown]

NARRATIVE: CASE EVENT DATE: 20250122
